FAERS Safety Report 21400969 (Version 1)
Quarter: 2022Q4

REPORT INFORMATION
  Report Type: Spontaneous
  Country: CN (occurrence: CN)
  Receive Date: 20221003
  Receipt Date: 20221003
  Transmission Date: 20230112
  Serious: Yes (Other)
  Sender: FDA-Public Use
  Company Number: CN-SUN PHARMACEUTICAL INDUSTRIES LTD-2022R1-357050

PATIENT
  Age: 60 Year
  Sex: Female

DRUGS (5)
  1. CAPECITABINE [Suspect]
     Active Substance: CAPECITABINE
     Indication: Breast cancer stage IV
     Dosage: 1250 MILLIGRAM/SQ. METER, BID DAY 1 TO DAY 14, Q3W FOR 4 CYCLES
     Route: 065
  2. TRASTUZUMAB [Suspect]
     Active Substance: TRASTUZUMAB
     Indication: Breast cancer stage IV
     Dosage: 6 MILLIGRAM/KILOGRAM ON DAY 1
     Route: 065
  3. PYROTINIB [Suspect]
     Active Substance: PYROTINIB
     Indication: Breast cancer stage IV
     Dosage: 400 MILLIGRAM, DAILY
     Route: 048
  4. PYROTINIB [Suspect]
     Active Substance: PYROTINIB
     Dosage: 320 MILLIGRAM, DAILY
     Route: 048
  5. LOPERAMIDE [Concomitant]
     Active Substance: LOPERAMIDE
     Indication: Diarrhoea
     Dosage: UNK
     Route: 065

REACTIONS (1)
  - Metastases to spleen [Unknown]
